FAERS Safety Report 20534353 (Version 1)
Quarter: 2022Q1

REPORT INFORMATION
  Report Type: Report from Study
  Country: US (occurrence: US)
  Receive Date: 20220302
  Receipt Date: 20220302
  Transmission Date: 20220424
  Serious: Yes (Other)
  Sender: FDA-Public Use
  Company Number: US-BIOVITRUM-2022US02803

PATIENT
  Age: 36 Year
  Sex: Female

DRUGS (1)
  1. KINERET [Suspect]
     Active Substance: ANAKINRA
     Indication: Still^s disease
     Route: 058
     Dates: start: 201904

REACTIONS (7)
  - Haemorrhagic ovarian cyst [Unknown]
  - Pneumonia [Unknown]
  - COVID-19 [Unknown]
  - Abdominal pain [Unknown]
  - Arthritis [Unknown]
  - Uterine leiomyoma [Unknown]
  - Off label use [Unknown]

NARRATIVE: CASE EVENT DATE: 20190401
